FAERS Safety Report 21383508 (Version 1)
Quarter: 2022Q3

REPORT INFORMATION
  Report Type: Spontaneous
  Country: US (occurrence: US)
  Receive Date: 20220927
  Receipt Date: 20220927
  Transmission Date: 20221027
  Serious: No
  Sender: FDA-Public Use
  Company Number: US-ELI_LILLY_AND_COMPANY-US202209008626

PATIENT
  Age: 3 Year
  Sex: Female

DRUGS (1)
  1. EMGALITY [Suspect]
     Active Substance: GALCANEZUMAB-GNLM
     Indication: Product used for unknown indication
     Dosage: UNK UNK, UNKNOWN
     Route: 065
     Dates: start: 20220914

REACTIONS (4)
  - Eczema [Unknown]
  - Pain in extremity [Unknown]
  - Accidental exposure to product by child [Unknown]
  - Off label use [Unknown]

NARRATIVE: CASE EVENT DATE: 20220914
